FAERS Safety Report 9427184 (Version 1)
Quarter: 2013Q3

REPORT INFORMATION
  Report Type: Spontaneous
  Country: US (occurrence: None)
  Receive Date: 20130729
  Receipt Date: 20130729
  Transmission Date: 20140515
  Serious: Yes (Other)
  Sender: FDA-Public Use
  Company Number: None

PATIENT
  Age: 21 Year
  Sex: Female
  Weight: 47.63 kg

DRUGS (2)
  1. LO LOESTRIN FE [Suspect]
     Indication: CONTRACEPTION
     Route: 048
     Dates: start: 20130217, end: 20130701
  2. PRILOSEC OTC [Concomitant]

REACTIONS (4)
  - Haemorrhage [None]
  - Depression [None]
  - Carpal tunnel syndrome [None]
  - Palpitations [None]
